FAERS Safety Report 12992502 (Version 1)
Quarter: 2016Q4

REPORT INFORMATION
  Report Type: Spontaneous
  Country: DE (occurrence: DE)
  Receive Date: 20161202
  Receipt Date: 20161202
  Transmission Date: 20170207
  Serious: Yes (Congenital Anomaly)
  Sender: FDA-Public Use
  Company Number: GXKR2016DE005497

PATIENT

DRUGS (3)
  1. IBUPROFEN. [Concomitant]
     Active Substance: IBUPROFEN
     Indication: BACK PAIN
     Dosage: 200 [MG/D ]/ IF REQUIRED, AFTER WEEK 19
     Route: 064
  2. AMITRIPTYLINE [Suspect]
     Active Substance: AMITRIPTYLINE
     Indication: DEPRESSION
     Dosage: 25 MG, TID
     Route: 064
     Dates: start: 20150617, end: 20160331
  3. FOLSAEURE [Concomitant]
     Active Substance: FOLIC ACID
     Indication: PROPHYLAXIS OF NEURAL TUBE DEFECT
     Route: 064
     Dates: start: 20150617, end: 20160331

REACTIONS (2)
  - Congenital hydronephrosis [Not Recovered/Not Resolved]
  - Cryptorchism [Not Recovered/Not Resolved]

NARRATIVE: CASE EVENT DATE: 20160331
